FAERS Safety Report 12500828 (Version 1)
Quarter: 2016Q2

REPORT INFORMATION
  Report Type: Spontaneous
  Country: BR (occurrence: BR)
  Receive Date: 20160627
  Receipt Date: 20160627
  Transmission Date: 20160815
  Serious: Yes (Other)
  Sender: FDA-Public Use
  Company Number: BR-PFIZER INC-2016315642

PATIENT
  Age: 17 Year
  Sex: Male
  Weight: 77 kg

DRUGS (3)
  1. EFFEXOR XR [Suspect]
     Active Substance: VENLAFAXINE HYDROCHLORIDE
     Indication: DEPRESSION
     Dosage: STRENGTH 75MG/150MG
     Route: 048
     Dates: start: 201508
  2. NEORAL [Concomitant]
     Active Substance: CYCLOSPORINE
     Indication: DEPRESSION
     Dosage: STRENGTH 200MG
     Route: 048
  3. QUETROS [Concomitant]
     Active Substance: QUETIAPINE
     Indication: DEPRESSION
     Dosage: STRENGTH 150MG
     Route: 048

REACTIONS (2)
  - Product use issue [Not Recovered/Not Resolved]
  - Bipolar disorder [Unknown]

NARRATIVE: CASE EVENT DATE: 201508
